FAERS Safety Report 7867325-9 (Version None)
Quarter: 2011Q4

REPORT INFORMATION
  Report Type: 
  Country: None (occurrence: None)
  Receive Date: 20111028
  Receipt Date: 20111026
  Transmission Date: 20120403
  Serious: Yes (Death, Hospitalization)
  Sender: FDA-Public Use
  Company Number: US-PFIZER INC-2011261281

PATIENT
  Age: 60 Year
  Sex: Female
  Weight: 75.7 kg

DRUGS (3)
  1. AZACITIDINE [Suspect]
     Indication: ACUTE MYELOID LEUKAEMIA
     Dosage: 75 MG/M2, SC OR IV ON DAYS 1-7
     Dates: start: 20110903
  2. GEMTUZUMAB OZOGAMICIN [Suspect]
     Indication: ACUTE MYELOID LEUKAEMIA
     Dosage: 3 MG/M2, OVER 2 HRS ON DAYS 4 AND 8
     Route: 042
     Dates: start: 20110907, end: 20110907
  3. ZOLINZA [Suspect]
     Indication: ACUTE MYELOID LEUKAEMIA
     Dosage: 400 MG, 1X/DAY ON DAYS 1-9
     Route: 048
     Dates: start: 20110903

REACTIONS (2)
  - PYREXIA [None]
  - SEPSIS [None]
